FAERS Safety Report 5731881-7 (Version None)
Quarter: 2008Q2

REPORT INFORMATION
  Report Type: 
  Country: None (occurrence: None)
  Receive Date: 20080508
  Receipt Date: 20080508
  Transmission Date: 20081010
  Serious: Yes (Death)
  Sender: FDA-Public Use
  Company Number: None

PATIENT
  Sex: Female
  Weight: 65.9 kg

DRUGS (1)
  1. HEPARIN [Suspect]
     Indication: DIALYSIS
     Dosage: 3-4 X/WEEK 040, 042
     Dates: start: 20071001, end: 20071219

REACTIONS (6)
  - DIALYSIS [None]
  - DIARRHOEA [None]
  - DYSPNOEA [None]
  - ENDOCARDITIS [None]
  - RESPIRATORY FAILURE [None]
  - SEPTIC SHOCK [None]
